FAERS Safety Report 21042055 (Version 3)
Quarter: 2022Q3

REPORT INFORMATION
  Report Type: Report from Study
  Country: US (occurrence: US)
  Receive Date: 20220705
  Receipt Date: 20220914
  Transmission Date: 20221026
  Serious: Yes (Hospitalization)
  Sender: FDA-Public Use
  Company Number: US-UCBSA-2022036930

PATIENT
  Age: 73 Year
  Sex: Female

DRUGS (2)
  1. CERTOLIZUMAB PEGOL [Suspect]
     Active Substance: CERTOLIZUMAB PEGOL
     Indication: Rheumatoid arthritis
     Dosage: 400 MILLIGRAM, EV 2 WEEKS(QOW)
     Route: 058
     Dates: start: 20220505, end: 20220606
  2. IMMUNGLOBULIN [Concomitant]
     Indication: Product used for unknown indication
     Dosage: 4 DOSAGE FORM, WEEKLY (QW)
     Route: 058

REACTIONS (4)
  - Sepsis [Recovered/Resolved]
  - Abscess [Recovering/Resolving]
  - Cellulitis [Recovered/Resolved]
  - Debridement [Recovered/Resolved]

NARRATIVE: CASE EVENT DATE: 20220613
